FAERS Safety Report 25206827 (Version 1)
Quarter: 2025Q2

REPORT INFORMATION
  Report Type: Spontaneous
  Country: US (occurrence: US)
  Receive Date: 20250417
  Receipt Date: 20250417
  Transmission Date: 20250717
  Serious: No
  Sender: EPIC PHARM
  Company Number: US-EPICPHARMA-US-2025EPCSPO00429

PATIENT
  Age: 67 Year
  Sex: Female
  Weight: 152 kg

DRUGS (2)
  1. BUPROPION HYDROCHLORIDE [Suspect]
     Active Substance: BUPROPION HYDROCHLORIDE
     Indication: Weight decreased
     Route: 048
     Dates: start: 20250329, end: 20250329
  2. NALTREXONE HYDROCHLORIDE [Concomitant]
     Active Substance: NALTREXONE HYDROCHLORIDE
     Indication: Product used for unknown indication
     Route: 065

REACTIONS (5)
  - Impaired driving ability [Recovering/Resolving]
  - Eating disorder [Recovering/Resolving]
  - Dizziness [Recovering/Resolving]
  - Vomiting [Recovering/Resolving]
  - Product use in unapproved indication [Unknown]

NARRATIVE: CASE EVENT DATE: 20250329
